FAERS Safety Report 24596736 (Version 1)
Quarter: 2024Q4

REPORT INFORMATION
  Report Type: Spontaneous
  Country: US (occurrence: US)
  Receive Date: 20241110
  Receipt Date: 20241110
  Transmission Date: 20250115
  Serious: No
  Sender: SANOFI AVENTIS
  Company Number: US-SA-2024SA310093

PATIENT
  Sex: Female
  Weight: 68.18 kg

DRUGS (2)
  1. DUPIXENT [Suspect]
     Active Substance: DUPILUMAB
     Indication: Neurodermatitis
     Dosage: 600 MG, 1X
     Route: 058
     Dates: start: 20240627, end: 20240627
  2. DUPIXENT [Suspect]
     Active Substance: DUPILUMAB
     Dosage: 300 MG, QOW
     Route: 058
     Dates: start: 202407

REACTIONS (8)
  - Eye disorder [Unknown]
  - Sensory disturbance [Unknown]
  - Skin burning sensation [Unknown]
  - Urticaria [Unknown]
  - Drooling [Unknown]
  - Alopecia [Unknown]
  - Ulcer [Unknown]
  - Skin swelling [Unknown]

NARRATIVE: CASE EVENT DATE: 20240101
